FAERS Safety Report 8989389 (Version 1)
Quarter: 2012Q4

REPORT INFORMATION
  Report Type: 
  Country: US (occurrence: US)
  Receive Date: 20121228
  Receipt Date: 20121228
  Transmission Date: 20130627
  Serious: Yes (Other)
  Sender: FDA-Public Use
  Company Number: US-BAYER-2012-135008

PATIENT
  Age: 33 Year
  Sex: Female

DRUGS (2)
  1. BETASERON [Suspect]
     Indication: RELAPSING-REMITTING MULTIPLE SCLEROSIS
     Dosage: UNK
     Dates: start: 20111111, end: 20121221
  2. ALEVE CAPLET/TABLET,MIDOL EXTENDED RELIEF CAPLET [Concomitant]

REACTIONS (4)
  - Mental impairment [None]
  - Asthenia [None]
  - Fatigue [None]
  - Treatment noncompliance [None]
